FAERS Safety Report 13637775 (Version 1)
Quarter: 2017Q2

REPORT INFORMATION
  Report Type: Spontaneous
  Country: JP (occurrence: JP)
  Receive Date: 20170609
  Receipt Date: 20170609
  Transmission Date: 20170830
  Serious: Yes (Hospitalization)
  Sender: FDA-Public Use
  Company Number: JP-PFIZER INC-2017252790

PATIENT
  Age: 49 Year
  Sex: Male

DRUGS (2)
  1. LORAZEPAM. [Suspect]
     Active Substance: LORAZEPAM
     Dosage: 60 MG 60 MG (120 TABLETS OF 0.5 MG), SINGLE
     Route: 048
  2. OLANZAPINE. [Suspect]
     Active Substance: OLANZAPINE
     Dosage: 1085 MG (217 TABLETS OF 5 MG), SINGLE

REACTIONS (2)
  - Overdose [Recovering/Resolving]
  - Toxicity to various agents [Recovering/Resolving]
